FAERS Safety Report 5964990-8 (Version None)
Quarter: 2008Q4

REPORT INFORMATION
  Report Type: 
  Country: None (occurrence: None)
  Receive Date: 20081125
  Receipt Date: 20081113
  Transmission Date: 20090506
  Serious: Yes (Other)
  Sender: FDA-Public Use
  Company Number: PHHY2008FR24292

PATIENT
  Age: 83 Year
  Sex: Male

DRUGS (4)
  1. EXELON [Suspect]
     Indication: DEMENTIA
     Dosage: 4.6MG/DAY
     Route: 062
  2. EXELON [Suspect]
     Dosage: 9.5 MG/DAY
     Route: 062
  3. FLUOROQUINOLONES [Suspect]
     Indication: PROSTATITIS
  4. MODOPAR [Concomitant]
     Indication: PARKINSON'S DISEASE
     Dosage: UNK

REACTIONS (2)
  - HEPATITIS [None]
  - TRANSAMINASES INCREASED [None]
